FAERS Safety Report 9770360 (Version 2)
Quarter: 2015Q2

REPORT INFORMATION
  Report Type: Report from Study
  Country: FR (occurrence: FR)
  Receive Date: 20131218
  Receipt Date: 20150504
  Transmission Date: 20150821
  Serious: Yes (Other)
  Sender: FDA-Public Use
  Company Number: FR-BRISTOL-MYERS SQUIBB COMPANY-19897834

PATIENT
  Age: 4 Decade
  Sex: Male

DRUGS (2)
  1. ARIPIPRAZOLE. [Suspect]
     Active Substance: ARIPIPRAZOLE
     Indication: SCHIZOPHRENIA
     Dosage: 10 MG, QD
     Route: 048
  2. STILNOX [Concomitant]
     Active Substance: ZOLPIDEM TARTRATE
     Indication: PSYCHOTHERAPY
     Dosage: UNK UNK, QD
     Route: 048

REACTIONS (4)
  - Delirium [Not Recovered/Not Resolved]
  - Psychotic disorder [Unknown]
  - Hallucination [Not Recovered/Not Resolved]
  - Suicidal ideation [Unknown]
